FAERS Safety Report 9410551 (Version 1)
Quarter: 2013Q3

REPORT INFORMATION
  Report Type: Spontaneous
  Country: US (occurrence: None)
  Receive Date: 20130718
  Receipt Date: 20130718
  Transmission Date: 20140515
  Serious: Yes (Other)
  Sender: FDA-Public Use
  Company Number: None

PATIENT
  Age: 32 Year
  Sex: Female
  Weight: 68.04 kg

DRUGS (1)
  1. TOPIRAMATE [Suspect]
     Route: 048
     Dates: start: 20130521, end: 20130717

REACTIONS (12)
  - Dry mouth [None]
  - Nervousness [None]
  - Hypoaesthesia [None]
  - Paraesthesia [None]
  - Dysgeusia [None]
  - Insomnia [None]
  - Confusional state [None]
  - Coordination abnormal [None]
  - Mental impairment [None]
  - Disturbance in attention [None]
  - Alopecia [None]
  - Memory impairment [None]
